FAERS Safety Report 16908535 (Version 1)
Quarter: 2019Q4

REPORT INFORMATION
  Report Type: Spontaneous
  Country: US (occurrence: US)
  Receive Date: 20191011
  Receipt Date: 20191011
  Transmission Date: 20200122
  Serious: Yes (Other)
  Sender: FDA-Public Use
  Company Number: US-PFIZER INC-2019437708

PATIENT
  Age: 48 Year
  Sex: Female
  Weight: 72.57 kg

DRUGS (1)
  1. KERYDIN [Suspect]
     Active Substance: TAVABOROLE
     Indication: ONYCHOMYCOSIS
     Dosage: UNK
     Dates: start: 201902

REACTIONS (1)
  - Nail discolouration [Not Recovered/Not Resolved]
